FAERS Safety Report 7083367-8 (Version None)
Quarter: 2010Q4

REPORT INFORMATION
  Report Type: 
  Country: None (occurrence: None)
  Receive Date: 20101104
  Receipt Date: 20101028
  Transmission Date: 20110411
  Serious: Yes (Death, Hospitalization)
  Sender: FDA-Public Use
  Company Number: PHHO2010CN14552

PATIENT
  Sex: Male
  Weight: 67 kg

DRUGS (5)
  1. BLINDED ALISKIREN ALI+TAB+CF [Suspect]
     Dosage: CODE NOT BROKEN
     Route: 048
     Dates: start: 20100909, end: 20101001
  2. ENALAPRIL MALEATE [Suspect]
     Dosage: CODE NOT BROKEN
     Route: 048
     Dates: start: 20100909, end: 20101001
  3. BLINDED NO TREATMENT RECEIVED NOMED [Suspect]
     Dosage: CODE NOT BROKEN
     Route: 048
     Dates: start: 20100909, end: 20101001
  4. ALISKIREN [Suspect]
     Indication: CARDIAC FAILURE
     Route: 048
  5. COMPARATOR ENALAPRIL [Suspect]
     Indication: CARDIAC FAILURE
     Route: 048

REACTIONS (9)
  - CARDIAC FAILURE CONGESTIVE [None]
  - FEELING COLD [None]
  - HYPERKALAEMIA [None]
  - MALAISE [None]
  - OEDEMA PERIPHERAL [None]
  - PYREXIA [None]
  - RENAL IMPAIRMENT [None]
  - SUDDEN CARDIAC DEATH [None]
  - UPPER RESPIRATORY TRACT INFECTION [None]
